FAERS Safety Report 8601085-9 (Version None)
Quarter: 2012Q3

REPORT INFORMATION
  Report Type: 
  Country: None (occurrence: None)
  Receive Date: 20120817
  Receipt Date: 20120802
  Transmission Date: 20120928
  Serious: Yes (Other)
  Sender: FDA-Public Use
  Company Number: PHHO2012GB011473

PATIENT
  Sex: Male

DRUGS (1)
  1. ILARIS [Suspect]
     Indication: HYPERGLYCAEMIA
     Route: 042
     Dates: start: 20100223, end: 20100921

REACTIONS (2)
  - OEDEMA PERIPHERAL [None]
  - DIABETES MELLITUS [None]
